FAERS Safety Report 5537492-0 (Version None)
Quarter: 2007Q4

REPORT INFORMATION
  Report Type: 
  Country: None (occurrence: None)
  Receive Date: 20071207
  Receipt Date: 20071128
  Transmission Date: 20080405
  Serious: Yes (Other)
  Sender: FDA-Public Use
  Company Number: BE-ASTRAZENECA-2007AC02363

PATIENT
  Sex: Male
  Weight: 80 kg

DRUGS (1)
  1. NEXIUM [Suspect]

REACTIONS (1)
  - GASTRIC POLYPS [None]
